FAERS Safety Report 6088955-3 (Version None)
Quarter: 2009Q1

REPORT INFORMATION
  Report Type: 
  Country: None (occurrence: None)
  Receive Date: 20090219
  Receipt Date: 20090211
  Transmission Date: 20090719
  Serious: Yes (Life-Threatening)
  Sender: FDA-Public Use
  Company Number: 100#03#2009-00523

PATIENT
  Age: 31 Year
  Sex: Male

DRUGS (9)
  1. CITALOPRAM HYDROBROMIDE [Suspect]
     Indication: ANXIETY
     Dosage: 20 MG ORAL
     Route: 048
     Dates: start: 20081101
  2. CITALOPRAM HYDROBROMIDE [Suspect]
     Indication: DEPRESSION
     Dosage: 20 MG ORAL
     Route: 048
     Dates: start: 20081101
  3. ATAZANAVIR SULFATE [Concomitant]
  4. EFAVIRENZ [Concomitant]
  5. INHALERS [Concomitant]
  6. LAMIVUDINE [Concomitant]
  7. RITONAVIR [Concomitant]
  8. TENOFOVIR DISOPROXIL FUMARATE [Concomitant]
  9. TRUVADA [Concomitant]

REACTIONS (2)
  - ALCOHOL INTERACTION [None]
  - SOMNAMBULISM [None]
